FAERS Safety Report 8904515 (Version 2)
Quarter: 2012Q4

REPORT INFORMATION
  Report Type: 
  Country: US (occurrence: US)
  Receive Date: 20121113
  Receipt Date: 20121119
  Transmission Date: 20130627
  Serious: Yes (Hospitalization)
  Sender: FDA-Public Use
  Company Number: US-ACTELION-A-NJ2012-74150

PATIENT
  Age: 65 Year
  Sex: Male

DRUGS (3)
  1. VELETRI [Suspect]
     Indication: PULMONARY ARTERIAL HYPERTENSION
     Dosage: 8 ng/kg, per min
     Route: 041
     Dates: start: 20120831
  2. COUMADIN [Concomitant]
  3. SILDENAFIL [Concomitant]

REACTIONS (4)
  - Pneumonia [Unknown]
  - Back pain [Unknown]
  - Pain [Unknown]
  - Headache [Recovering/Resolving]
